FAERS Safety Report 5353467-9 (Version None)
Quarter: 2007Q2

REPORT INFORMATION
  Report Type: 
  Country: None (occurrence: None)
  Receive Date: 20070612
  Receipt Date: 20070605
  Transmission Date: 20071010
  Serious: Yes (Death, Hospitalization)
  Sender: FDA-Public Use
  Company Number: PHBS2005JP08534

PATIENT
  Age: 62 Year
  Sex: Male

DRUGS (8)
  1. NEORAL [Suspect]
     Indication: STEM CELL TRANSPLANT
     Dosage: UNK, UNK
     Route: 065
  2. METHYLPREDNISOLONE 16MG TAB [Concomitant]
     Indication: STEM CELL TRANSPLANT
     Route: 065
  3. TACROLIMUS [Suspect]
     Indication: STEM CELL TRANSPLANT
     Route: 065
  4. RITUXAN [Concomitant]
  5. CYCLOPHOSPHAMIDE [Concomitant]
  6. NOVANTRONE [Concomitant]
  7. ONCOVIN [Concomitant]
  8. PREDNISONE TAB [Concomitant]

REACTIONS (13)
  - ACUTE GRAFT VERSUS HOST DISEASE [None]
  - DIARRHOEA [None]
  - DIFFUSE ALVEOLAR DAMAGE [None]
  - HEADACHE [None]
  - IMMUNODEFICIENCY [None]
  - MASS [None]
  - MULTI-ORGAN FAILURE [None]
  - NODULE [None]
  - OLFACTORY NERVE DISORDER [None]
  - PANCYTOPENIA [None]
  - PNEUMONIA BACTERIAL [None]
  - RASH GENERALISED [None]
  - SINUSITIS FUNGAL [None]
